FAERS Safety Report 9277311 (Version 1)
Quarter: 2013Q2

REPORT INFORMATION
  Report Type: Spontaneous
  Country: US (occurrence: None)
  Receive Date: 20130503
  Receipt Date: 20130503
  Transmission Date: 20140414
  Serious: Yes (Hospitalization)
  Sender: FDA-Public Use
  Company Number: None

PATIENT
  Age: 53 Year
  Sex: Female
  Weight: 58.97 kg

DRUGS (1)
  1. GAMMAGARD [Suspect]
     Dosage: 2 DAYS EACH MONTH
     Dates: start: 20130417, end: 20130419

REACTIONS (2)
  - Pyrexia [None]
  - Chills [None]
